FAERS Safety Report 12495333 (Version 1)
Quarter: 2016Q2

REPORT INFORMATION
  Report Type: Spontaneous
  Country: US (occurrence: None)
  Receive Date: 20160623
  Receipt Date: 20160623
  Transmission Date: 20160815
  Serious: Yes (Hospitalization)
  Sender: FDA-Public Use
  Company Number: None

PATIENT
  Age: 39 Year
  Sex: Male
  Weight: 93.1 kg

DRUGS (1)
  1. LIDOCAINE. [Suspect]
     Active Substance: LIDOCAINE
     Indication: BRONCHOSCOPY
     Route: 055
     Dates: start: 20160428, end: 20160428

REACTIONS (2)
  - Respiratory distress [None]
  - Bronchospasm [None]

NARRATIVE: CASE EVENT DATE: 20160429
